FAERS Safety Report 6312135-7 (Version None)
Quarter: 2009Q3

REPORT INFORMATION
  Report Type: 
  Country: None (occurrence: None)
  Receive Date: 20090812
  Receipt Date: 20090812
  Transmission Date: 20100115
  Serious: Yes (Hospitalization)
  Sender: FDA-Public Use
  Company Number: None

PATIENT
  Sex: Female

DRUGS (1)
  1. PURSENNID (NCH) (SENNA GLYCOSIDES (CA SALTS OF PURIFIELD SENNA EXTRACT [Suspect]
     Dosage: 2 DF, QD, ORAL
     Route: 048

REACTIONS (2)
  - CEREBRAL HAEMORRHAGE [None]
  - LOSS OF CONSCIOUSNESS [None]
